FAERS Safety Report 18604292 (Version 1)
Quarter: 2020Q4

REPORT INFORMATION
  Report Type: Spontaneous
  Country: US (occurrence: US)
  Receive Date: 20201211
  Receipt Date: 20201211
  Transmission Date: 20210114
  Serious: No
  Sender: FDA-Public Use
  Company Number: US-SA-2020SA352078

PATIENT

DRUGS (2)
  1. DUPIXENT [Suspect]
     Active Substance: DUPILUMAB
     Indication: DERMATITIS ATOPIC
     Dosage: 300 MG
     Route: 058
  2. AQUAPHOR [MINERAL WAX;PARAFFIN, LIQUID;PETROLATUM;WOOL ALCOHOLS] [Concomitant]
     Dosage: UNK

REACTIONS (2)
  - Therapeutic response decreased [Unknown]
  - Dermatitis atopic [Unknown]
